FAERS Safety Report 5446854-1 (Version None)
Quarter: 2007Q3

REPORT INFORMATION
  Report Type: 
  Country: None (occurrence: None)
  Receive Date: 20070907
  Receipt Date: 20070829
  Transmission Date: 20080115
  Serious: Yes (Other)
  Sender: FDA-Public Use
  Company Number: US-PFIZER INC-2007073757

PATIENT
  Sex: Female

DRUGS (7)
  1. CHANTIX [Suspect]
     Indication: SMOKING CESSATION THERAPY
     Dates: start: 20070501, end: 20070101
  2. PROZAC [Concomitant]
  3. CYTOMEL [Concomitant]
  4. LEVOTHROID [Concomitant]
  5. LOTREL [Concomitant]
  6. CLONAZEPAM [Concomitant]
  7. SINEMET [Concomitant]

REACTIONS (1)
  - DEPRESSION [None]
